FAERS Safety Report 5681037-1 (Version None)
Quarter: 2008Q1

REPORT INFORMATION
  Report Type: 
  Country: None (occurrence: None)
  Receive Date: 20080325
  Receipt Date: 20030922
  Transmission Date: 20080703
  Serious: Yes (Other)
  Sender: FDA-Public Use
  Company Number: 2008S1002118

PATIENT
  Age: 73 Year
  Sex: Female

DRUGS (1)
  1. PHOPHOSODA GINGER LEMON [Suspect]
     Indication: COLONOSCOPY
     Dosage: 45 ML;X1; PO
     Route: 048
     Dates: start: 20030824, end: 20030825

REACTIONS (2)
  - DIALYSIS [None]
  - RENAL FAILURE [None]
